FAERS Safety Report 13640847 (Version 1)
Quarter: 2017Q2

REPORT INFORMATION
  Report Type: Spontaneous
  Country: US (occurrence: US)
  Receive Date: 20170612
  Receipt Date: 20170612
  Transmission Date: 20170830
  Serious: No
  Sender: FDA-Public Use
  Company Number: US-TEVA-745146ACC

PATIENT
  Sex: Male

DRUGS (1)
  1. TESTOSTERONE CYP INJ [Suspect]
     Active Substance: TESTOSTERONE CYPIONATE
     Dates: start: 20170222

REACTIONS (1)
  - Rash pruritic [Unknown]

NARRATIVE: CASE EVENT DATE: 20170224
